FAERS Safety Report 5443456-8 (Version None)
Quarter: 2007Q3

REPORT INFORMATION
  Report Type: 
  Country: None (occurrence: None)
  Receive Date: 20070905
  Receipt Date: 20070827
  Transmission Date: 20080115
  Serious: Yes (Death)
  Sender: FDA-Public Use
  Company Number: US-MERCK-0708USA05058

PATIENT
  Age: 78 Year
  Sex: Male

DRUGS (6)
  1. ZOLINZA [Suspect]
     Indication: MYCOSIS FUNGOIDES
     Route: 048
     Dates: start: 20070531, end: 20070611
  2. ZOLINZA [Suspect]
     Route: 048
     Dates: start: 20070524, end: 20070530
  3. DIGOXIN [Concomitant]
     Route: 065
  4. SYNTHROID [Concomitant]
     Route: 065
  5. PERCOCET [Concomitant]
     Route: 065
  6. VITAMINS (UNSPECIFIED) [Concomitant]
     Route: 065

REACTIONS (5)
  - DEATH [None]
  - DIARRHOEA [None]
  - FATIGUE [None]
  - NAUSEA [None]
  - VOMITING [None]
